FAERS Safety Report 8351191-1 (Version None)
Quarter: 2012Q2

REPORT INFORMATION
  Report Type: 
  Country: None (occurrence: None)
  Receive Date: 20120510
  Receipt Date: 20120507
  Transmission Date: 20120825
  Serious: Yes (Death, Other)
  Sender: FDA-Public Use
  Company Number: US-GILEAD-2012-0054476

PATIENT
  Sex: Female

DRUGS (7)
  1. SINGULAIR [Concomitant]
  2. LETAIRIS [Suspect]
     Indication: SLEEP APNOEA SYNDROME
  3. LETAIRIS [Suspect]
     Indication: PULMONARY HYPERTENSION
     Dosage: 10 MG, UNK
     Route: 048
     Dates: start: 20080827, end: 20120427
  4. CLONAZEPAM [Concomitant]
  5. REVATIO [Concomitant]
  6. NORVASC [Concomitant]
  7. PROTONIX [Concomitant]

REACTIONS (4)
  - RENAL FAILURE ACUTE [None]
  - DYSPNOEA [None]
  - PULMONARY HYPERTENSION [None]
  - HYPOXIA [None]
